FAERS Safety Report 23696197 (Version 1)
Quarter: 2024Q2

REPORT INFORMATION
  Report Type: Spontaneous
  Country: AR (occurrence: AR)
  Receive Date: 20240402
  Receipt Date: 20240402
  Transmission Date: 20240716
  Serious: Yes (Hospitalization, Other)
  Sender: FDA-Public Use
  Company Number: AR-ALKEM LABORATORIES LIMITED-AR-ALKEM-2023-13392

PATIENT
  Age: 35 Year
  Sex: Male

DRUGS (4)
  1. ZOLPIDEM [Suspect]
     Active Substance: ZOLPIDEM TARTRATE
     Indication: Product used for unknown indication
     Dosage: MEGADOSE
     Route: 065
  2. ZOLPIDEM [Suspect]
     Active Substance: ZOLPIDEM TARTRATE
     Dosage: 300 MILLIGRAM, QD (PER DAY) (UP TO 30 ZOLPIDEM TABLETS)
     Route: 065
  3. QUETIAPINE FUMARATE [Suspect]
     Active Substance: QUETIAPINE FUMARATE
     Indication: Anxiety disorder
     Dosage: 25 MG/DAY
     Route: 065
  4. SERTRALINE [Suspect]
     Active Substance: SERTRALINE HYDROCHLORIDE
     Indication: Anxiety disorder
     Dosage: 50 MG/DAY
     Route: 065

REACTIONS (8)
  - Psychomotor hyperactivity [Unknown]
  - Generalised tonic-clonic seizure [Recovered/Resolved]
  - Intentional overdose [Unknown]
  - Prescription drug used without a prescription [Unknown]
  - Drug abuse [Unknown]
  - Drug dependence [Unknown]
  - Drug withdrawal convulsions [Recovered/Resolved]
  - Treatment noncompliance [Unknown]
